FAERS Safety Report 6336786-9 (Version None)
Quarter: 2009Q3

REPORT INFORMATION
  Report Type: 
  Country: None (occurrence: None)
  Receive Date: 20090831
  Receipt Date: 20090831
  Transmission Date: 20100115
  Serious: Yes (Hospitalization)
  Sender: FDA-Public Use
  Company Number: None

PATIENT
  Age: 41 Year
  Sex: Male
  Weight: 86.6 kg

DRUGS (14)
  1. APTIVUS [Suspect]
     Indication: HIV INFECTION
     Dosage: 2 TABLET TWICE DAILY PO
     Route: 048
     Dates: start: 20090622, end: 20090827
  2. NORVIR [Suspect]
     Indication: HIV INFECTION
     Dosage: 1 TABLET ONCE DAILY PO
     Route: 048
     Dates: start: 20090622, end: 20090827
  3. LEVETIRACETAM [Concomitant]
  4. EMTRICITABINE/TENOFOVIR [Concomitant]
  5. ONDANSETRON [Concomitant]
  6. ... [Concomitant]
  7. ... [Concomitant]
  8. ... [Concomitant]
  9. ... [Concomitant]
  10. ... [Concomitant]
  11. ... [Concomitant]
  12. ... [Concomitant]
  13. ... [Concomitant]
  14. ... [Concomitant]

REACTIONS (4)
  - ASTHENIA [None]
  - DIZZINESS [None]
  - DYSPNOEA [None]
  - HYPOPHAGIA [None]
